FAERS Safety Report 9058398 (Version 1)
Quarter: 2013Q1

REPORT INFORMATION
  Report Type: Spontaneous
  Country: US (occurrence: None)
  Receive Date: 20130118
  Receipt Date: 20130118
  Transmission Date: 20140127
  Serious: Yes (Death)
  Sender: FDA-Public Use
  Company Number: 2013POI057300005

PATIENT
  Age: 53 Year
  Sex: Female

DRUGS (4)
  1. OXYBUTYNIN CHLORIDE EXTENDED RELEASE [Suspect]
     Route: 048
     Dates: end: 2011
  2. DIPHENHYDRAMINE [Suspect]
     Route: 048
     Dates: end: 2011
  3. FLUOXETINE [Suspect]
     Route: 048
     Dates: end: 2011
  4. RISPERIDONE [Suspect]
     Route: 048
     Dates: end: 2011

REACTIONS (1)
  - Death [None]
